FAERS Safety Report 14861632 (Version 1)
Quarter: 2018Q2

REPORT INFORMATION
  Report Type: Spontaneous
  Country: US (occurrence: US)
  Receive Date: 20180422
  Receipt Date: 20180422
  Transmission Date: 20180711
  Serious: Yes (Life-Threatening)
  Sender: FDA-Public Use
  Company Number: None

PATIENT
  Age: 52 Year
  Sex: Female
  Weight: 117 kg

DRUGS (9)
  1. WALKING CANE [Concomitant]
  2. CYCLOBENZAPRINE HYDROCHLORIDE 5MG [Suspect]
     Active Substance: CYCLOBENZAPRINE HYDROCHLORIDE
     Indication: FIBROMYALGIA
     Dosage: ?          QUANTITY:90 DF DOSAGE FORM;?
     Route: 048
     Dates: start: 20180413
  3. PROAIR HFA [Concomitant]
     Active Substance: ALBUTEROL SULFATE
  4. METAMUCIL [Concomitant]
     Active Substance: PLANTAGO SEED
  5. TYLENOL [Concomitant]
     Active Substance: ACETAMINOPHEN
  6. CETIRIZINE [Concomitant]
     Active Substance: CETIRIZINE HYDROCHLORIDE
  7. CYCLOBENZAPRINE. [Concomitant]
     Active Substance: CYCLOBENZAPRINE
  8. ZIOPTAN [Concomitant]
     Active Substance: TAFLUPROST
  9. DISTILLED WATER [Concomitant]

REACTIONS (4)
  - Muscle spasms [None]
  - Paraesthesia [None]
  - Pain in extremity [None]
  - Headache [None]

NARRATIVE: CASE EVENT DATE: 20180413
